FAERS Safety Report 7041413-1 (Version None)
Quarter: 2010Q4

REPORT INFORMATION
  Report Type: 
  Country: None (occurrence: None)
  Receive Date: 20101008
  Receipt Date: 20100921
  Transmission Date: 20110411
  Serious: Yes (Hospitalization)
  Sender: FDA-Public Use
  Company Number: JPI-P-012183

PATIENT
  Age: 22 Year
  Sex: Female

DRUGS (6)
  1. XYREM [Suspect]
     Indication: CATAPLEXY
     Dosage: 4.5 GM (2.25 GM, 2 IN 1 D), ORAL; 5.5 GM (2 IN 1 D), ORAL; 8.5 GM (4.25 GM, 2 IN 1 D), ORAL
     Route: 048
     Dates: start: 20100708, end: 20100101
  2. XYREM [Suspect]
     Indication: CATAPLEXY
     Dosage: 4.5 GM (2.25 GM, 2 IN 1 D), ORAL; 5.5 GM (2 IN 1 D), ORAL; 8.5 GM (4.25 GM, 2 IN 1 D), ORAL
     Route: 048
     Dates: start: 20100427, end: 20100512
  3. XYREM [Suspect]
     Indication: CATAPLEXY
     Dosage: 4.5 GM (2.25 GM, 2 IN 1 D), ORAL; 5.5 GM (2 IN 1 D), ORAL; 8.5 GM (4.25 GM, 2 IN 1 D), ORAL
     Route: 048
     Dates: start: 20100513, end: 20100707
  4. BUPRION HYDROCHLORIDE [Concomitant]
  5. VENLAFAXINE HYDROCHLORIDE [Concomitant]
  6. METHYLPHENIDATE HCL [Concomitant]

REACTIONS (6)
  - ABNORMAL BEHAVIOUR [None]
  - AGGRESSION [None]
  - DEPRESSION [None]
  - INSOMNIA [None]
  - MEMORY IMPAIRMENT [None]
  - PSYCHOTIC DISORDER [None]
